FAERS Safety Report 23799589 (Version 2)
Quarter: 2024Q2

REPORT INFORMATION
  Report Type: Report from Study
  Country: US (occurrence: US)
  Receive Date: 20240430
  Receipt Date: 20240507
  Transmission Date: 20240716
  Serious: Yes (Hospitalization)
  Sender: FDA-Public Use
  Company Number: US-Eisai-EC-2024-161503

PATIENT
  Age: 62 Year
  Sex: Male

DRUGS (2)
  1. LENVIMA [Suspect]
     Active Substance: LENVATINIB
     Indication: Renal cell carcinoma
     Route: 048
     Dates: start: 202403
  2. LENVIMA [Suspect]
     Active Substance: LENVATINIB
     Dosage: 10 MG ON ONE DAY AND 20MG ON THE NEXT AND TO KEEP ALTERNATING.
     Route: 048
     Dates: start: 20240423

REACTIONS (3)
  - Hyponatraemia [Unknown]
  - Encephalopathy [Unknown]
  - Fatigue [Unknown]

NARRATIVE: CASE EVENT DATE: 20240101
